FAERS Safety Report 9862546 (Version 4)
Quarter: 2014Q1

REPORT INFORMATION
  Report Type: Spontaneous
  Country: JP (occurrence: JP)
  Receive Date: 20140203
  Receipt Date: 20140226
  Transmission Date: 20141002
  Serious: Yes (Other)
  Sender: FDA-Public Use
  Company Number: JP-PFIZER INC-2014012823

PATIENT
  Age: 64 Year
  Sex: Male
  Weight: 62.6 kg

DRUGS (16)
  1. VFEND [Suspect]
     Indication: BRONCHOPULMONARY ASPERGILLOSIS
     Dosage: 800 MG, DAILY
     Route: 042
     Dates: start: 20140110, end: 20140111
  2. VFEND [Suspect]
     Indication: PULMONARY MYCOSIS
     Dosage: REDUCED DOSE
     Route: 042
  3. SOLU-MEDROL [Suspect]
     Dosage: 500 MG, 1X/DAY
     Route: 042
     Dates: start: 20140110, end: 20140111
  4. BAYASPIRIN [Concomitant]
     Indication: CEREBRAL INFARCTION
     Dosage: 100 MG, 1X/DAY
     Route: 048
  5. JANUVIA [Concomitant]
     Indication: TYPE 2 DIABETES MELLITUS
     Dosage: 50 MG, 1X/DAY
     Route: 048
  6. HOKUNALIN [Concomitant]
     Indication: CHRONIC OBSTRUCTIVE PULMONARY DISEASE
     Dosage: 2 MG, 1X/DAY
     Route: 062
     Dates: start: 20131201
  7. NOVORAPID [Concomitant]
     Indication: TYPE 2 DIABETES MELLITUS
     Dosage: 24 IU, 3X/DAY
     Route: 058
     Dates: start: 20131130
  8. LANTUS [Concomitant]
     Indication: TYPE 2 DIABETES MELLITUS
     Dosage: 6 IU, 1X/DAY
     Route: 058
     Dates: start: 20131204
  9. BAKTAR [Concomitant]
     Indication: PNEUMOCYSTIS JIROVECII PNEUMONIA
     Dosage: 1 DF, 1X/DAY
     Route: 048
     Dates: start: 20131231, end: 20140113
  10. SPIRIVA RESPIMAT [Concomitant]
     Indication: CHRONIC OBSTRUCTIVE PULMONARY DISEASE
     Dosage: 2.5 UG, 2X/DAY
     Route: 055
     Dates: start: 20131101
  11. TAKEPRON OD [Concomitant]
     Dosage: 15 MG, 1X/DAY
     Route: 048
     Dates: start: 20131101
  12. ZOSYN [Concomitant]
     Indication: PNEUMONIA
     Dosage: 4.5 G, 3X/DAY
     Route: 041
     Dates: start: 20140110, end: 20140111
  13. SOLDEM 3A [Concomitant]
     Indication: DEHYDRATION
     Dosage: 500 ML, 1X/DAY
     Route: 041
     Dates: start: 20140110, end: 20140111
  14. LACTEC D [Concomitant]
     Indication: DEHYDRATION
     Dosage: 500 ML, 2X/DAY
     Route: 041
     Dates: start: 20140109, end: 20140109
  15. PREDNISOLONE [Concomitant]
     Dosage: 5 MG, UNK
     Route: 048
  16. LOXONIN [Concomitant]
     Dosage: 50 MG, UNK
     Route: 062

REACTIONS (4)
  - Hallucination, visual [Recovered/Resolved]
  - Hallucination [Recovered/Resolved]
  - Agitation [Recovered/Resolved]
  - Drug eruption [Recovered/Resolved]
